FAERS Safety Report 7496135-X (Version None)
Quarter: 2011Q2

REPORT INFORMATION
  Report Type: 
  Country: None (occurrence: None)
  Receive Date: 20110520
  Receipt Date: 20110520
  Transmission Date: 20111010
  Serious: Yes (Death)
  Sender: FDA-Public Use
  Company Number: None

PATIENT
  Age: 63 Year
  Sex: Male
  Weight: 106.1417 kg

DRUGS (2)
  1. ACTEMRA [Suspect]
  2. ACTEMRA [Suspect]
     Dosage: 440MG Q4WEEKS IV
     Route: 042
     Dates: start: 20101101, end: 20110401

REACTIONS (2)
  - INFUSION RELATED REACTION [None]
  - HYPOTENSION [None]
